FAERS Safety Report 12261856 (Version 1)
Quarter: 2016Q2

REPORT INFORMATION
  Report Type: Spontaneous
  Country: US (occurrence: US)
  Receive Date: 20160413
  Receipt Date: 20160413
  Transmission Date: 20160815
  Serious: No
  Sender: FDA-Public Use
  Company Number: US-009507513-1604USA007686

PATIENT
  Sex: Male

DRUGS (4)
  1. PIOGLITAZONE HYDROCHLORIDE. [Suspect]
     Active Substance: PIOGLITAZONE HYDROCHLORIDE
     Dosage: UNK
  2. JANUMET [Suspect]
     Active Substance: METFORMIN HYDROCHLORIDE\SITAGLIPTIN PHOSPHATE
     Dosage: UNK
     Route: 048
  3. TOUJEO [Suspect]
     Active Substance: INSULIN GLARGINE
     Dosage: 12 UNITS DAILY
  4. TOUJEO [Suspect]
     Active Substance: INSULIN GLARGINE
     Dosage: 14 UNITS

REACTIONS (2)
  - Insomnia [Unknown]
  - Hyperhidrosis [Unknown]
